FAERS Safety Report 18789699 (Version 1)
Quarter: 2021Q1

REPORT INFORMATION
  Report Type: Spontaneous
  Country: US (occurrence: US)
  Receive Date: 20210126
  Receipt Date: 20210126
  Transmission Date: 20210419
  Serious: No
  Sender: FDA-Public Use
  Company Number: US-BAYER-2021-037839

PATIENT
  Sex: Male

DRUGS (2)
  1. LOTRIMIN ULTRA ANTIFUNGAL [Suspect]
     Active Substance: BUTENAFINE HYDROCHLORIDE
     Dosage: UNK
  2. LOTRIMIN AF ANTIFUNGAL [Suspect]
     Active Substance: MICONAZOLE NITRATE
     Dosage: UNK, ONCE MORNING AND EVENING
     Route: 061
     Dates: start: 2018

REACTIONS (1)
  - Drug ineffective [Unknown]
